FAERS Safety Report 20705451 (Version 1)
Quarter: 2022Q2

REPORT INFORMATION
  Report Type: Spontaneous
  Country: US (occurrence: US)
  Receive Date: 20220413
  Receipt Date: 20220413
  Transmission Date: 20220721
  Serious: Yes (Death, Other)
  Sender: FDA-Public Use
  Company Number: US-GLAXOSMITHKLINE-US2022063156

PATIENT
  Age: 85 Year
  Sex: Male

DRUGS (1)
  1. SEREVENT DISKUS [Suspect]
     Active Substance: SALMETEROL XINAFOATE
     Indication: Chronic obstructive pulmonary disease
     Dosage: INH 60
     Dates: start: 20200101, end: 20220320

REACTIONS (2)
  - Head injury [Fatal]
  - Fall [Unknown]

NARRATIVE: CASE EVENT DATE: 20220320
